FAERS Safety Report 6297491-0 (Version None)
Quarter: 2009Q3

REPORT INFORMATION
  Report Type: 
  Country: None (occurrence: None)
  Receive Date: 20090804
  Receipt Date: 20090804
  Transmission Date: 20100115
  Serious: No
  Sender: FDA-Public Use
  Company Number: None

PATIENT
  Sex: Female
  Weight: 58 kg

DRUGS (2)
  1. CISPLATIN [Suspect]
     Dosage: 122 MG
  2. TAXOL [Suspect]
     Dosage: 316 MG

REACTIONS (1)
  - NEUTROPENIA [None]
